FAERS Safety Report 12875300 (Version 3)
Quarter: 2016Q4

REPORT INFORMATION
  Report Type: Report from Study
  Country: CA (occurrence: CA)
  Receive Date: 20161024
  Receipt Date: 20161225
  Transmission Date: 20170207
  Serious: Yes (Death, Other)
  Sender: FDA-Public Use
  Company Number: CA-BEH-2016074580

PATIENT
  Age: 62 Year
  Sex: Male

DRUGS (1)
  1. HIZENTRA [Suspect]
     Active Substance: HUMAN IMMUNOGLOBULIN G
     Indication: SECONDARY IMMUNODEFICIENCY
     Dosage: 10 G, QW
     Route: 058
     Dates: start: 2016

REACTIONS (4)
  - Pneumonia [Unknown]
  - Renal failure [Unknown]
  - Neoplasm malignant [Fatal]
  - Infection [Fatal]
